FAERS Safety Report 7795417-1 (Version None)
Quarter: 2011Q3

REPORT INFORMATION
  Report Type: 
  Country: None (occurrence: None)
  Receive Date: 20110930
  Receipt Date: 20110922
  Transmission Date: 20111222
  Serious: Yes (Death, Other)
  Sender: FDA-Public Use
  Company Number: 1000022789

PATIENT
  Age: 98 Year
  Sex: Male

DRUGS (17)
  1. LENDORMIN D (BROTIZOLAM) [Suspect]
     Indication: INSOMNIA
     Dosage: 0.25 MG (0.25 MG, 1 IN 1 D),ORAL
     Route: 048
     Dates: end: 20110713
  2. FUROSEMIDE [Concomitant]
  3. PARIET (RABEPRAZOLE SODIUM)(RABEPRAZOLE SODIUM) [Concomitant]
  4. MEMANTINE [Suspect]
     Indication: VERBAL ABUSE
     Dosage: 5 MG (5 MG, 1 IN 1 D),ORAL,  10 MG (10 MG, 1 IN 1 D),ORAL
     Route: 048
     Dates: start: 20110615, end: 20110601
  5. MEMANTINE [Suspect]
     Indication: MOOD SWINGS
     Dosage: 5 MG (5 MG, 1 IN 1 D),ORAL,  10 MG (10 MG, 1 IN 1 D),ORAL
     Route: 048
     Dates: start: 20110615, end: 20110601
  6. MEMANTINE [Suspect]
     Indication: REFUSAL OF TREATMENT BY PATIENT
     Dosage: 5 MG (5 MG, 1 IN 1 D),ORAL,  10 MG (10 MG, 1 IN 1 D),ORAL
     Route: 048
     Dates: start: 20110615, end: 20110601
  7. MEMANTINE [Suspect]
     Indication: DEMENTIA ALZHEIMER'S TYPE
     Dosage: 5 MG (5 MG, 1 IN 1 D),ORAL,  10 MG (10 MG, 1 IN 1 D),ORAL
     Route: 048
     Dates: start: 20110615, end: 20110601
  8. MEMANTINE [Suspect]
     Indication: VERBAL ABUSE
     Dosage: 5 MG (5 MG, 1 IN 1 D),ORAL,  10 MG (10 MG, 1 IN 1 D),ORAL
     Route: 048
     Dates: start: 20110601, end: 20110627
  9. MEMANTINE [Suspect]
     Indication: MOOD SWINGS
     Dosage: 5 MG (5 MG, 1 IN 1 D),ORAL,  10 MG (10 MG, 1 IN 1 D),ORAL
     Route: 048
     Dates: start: 20110601, end: 20110627
  10. MEMANTINE [Suspect]
     Indication: REFUSAL OF TREATMENT BY PATIENT
     Dosage: 5 MG (5 MG, 1 IN 1 D),ORAL,  10 MG (10 MG, 1 IN 1 D),ORAL
     Route: 048
     Dates: start: 20110601, end: 20110627
  11. MEMANTINE [Suspect]
     Indication: DEMENTIA ALZHEIMER'S TYPE
     Dosage: 5 MG (5 MG, 1 IN 1 D),ORAL,  10 MG (10 MG, 1 IN 1 D),ORAL
     Route: 048
     Dates: start: 20110601, end: 20110627
  12. MEMANTINE [Suspect]
     Indication: REFUSAL OF TREATMENT BY PATIENT
     Dosage: 20 MG (20 MG, 1 IN 1 D),ORAL
     Route: 048
     Dates: start: 20110628, end: 20110713
  13. MEMANTINE [Suspect]
     Indication: DEMENTIA ALZHEIMER'S TYPE
     Dosage: 20 MG (20 MG, 1 IN 1 D),ORAL
     Route: 048
     Dates: start: 20110628, end: 20110713
  14. MEMANTINE [Suspect]
     Indication: VERBAL ABUSE
     Dosage: 20 MG (20 MG, 1 IN 1 D),ORAL
     Route: 048
     Dates: start: 20110628, end: 20110713
  15. MEMANTINE [Suspect]
     Indication: MOOD SWINGS
     Dosage: 20 MG (20 MG, 1 IN 1 D),ORAL
     Route: 048
     Dates: start: 20110628, end: 20110713
  16. MEMANTINE [Suspect]
     Indication: AGGRESSION
     Dosage: 20 MG (20 MG, 1 IN 1 D),ORAL
     Route: 048
     Dates: start: 20110628, end: 20110713
  17. APORASNON (SPIRONOLACTONE)(SPIRONOLACTONE) [Concomitant]

REACTIONS (8)
  - DEPRESSED LEVEL OF CONSCIOUSNESS [None]
  - HYPOPHAGIA [None]
  - CHOKING [None]
  - INCORRECT DOSE ADMINISTERED [None]
  - RESPIRATORY DISORDER [None]
  - DYSPHAGIA [None]
  - DRUG PRESCRIBING ERROR [None]
  - SOMNOLENCE [None]
